FAERS Safety Report 18647793 (Version 1)
Quarter: 2020Q4

REPORT INFORMATION
  Report Type: Spontaneous
  Country: US (occurrence: US)
  Receive Date: 20201221
  Receipt Date: 20201221
  Transmission Date: 20210114
  Serious: Yes (Death)
  Sender: FDA-Public Use
  Company Number: None

PATIENT
  Age: 34 Year
  Sex: Male

DRUGS (12)
  1. BACTRIM [Concomitant]
     Active Substance: SULFAMETHOXAZOLE\TRIMETHOPRIM
  2. CLONIDINE. [Concomitant]
     Active Substance: CLONIDINE
  3. CREON [Concomitant]
     Active Substance: PANCRELIPASE AMYLASE\PANCRELIPASE LIPASE\PANCRELIPASE PROTEASE
  4. MYCOPHENOLIC [Concomitant]
     Active Substance: MYCOPHENOLIC ACID
  5. NOVOLOG [Concomitant]
     Active Substance: INSULIN ASPART
  6. VIT D [Concomitant]
     Active Substance: VITAMIN D NOS
  7. DAILY VITE [Concomitant]
     Active Substance: VITAMINS
  8. TACROLIMUS 0.5MG [Suspect]
     Active Substance: TACROLIMUS
     Dosage: ?          OTHER FREQUENCY:QAM;?
     Route: 048
     Dates: start: 20180908
  9. TACROLIMUS 1MG [Suspect]
     Active Substance: TACROLIMUS
     Route: 048
     Dates: start: 20180908
  10. CALCIUM 600 [Concomitant]
     Active Substance: CALCIUM
  11. PREDNISONE. [Concomitant]
     Active Substance: PREDNISONE
  12. SIROLIMUS. [Concomitant]
     Active Substance: SIROLIMUS

REACTIONS (1)
  - Death [None]

NARRATIVE: CASE EVENT DATE: 20201219
